FAERS Safety Report 9212675 (Version 2)
Quarter: 2014Q1

REPORT INFORMATION
  Report Type: Spontaneous
  Country: US (occurrence: US)
  Receive Date: 20130405
  Receipt Date: 20140324
  Transmission Date: 20141002
  Serious: No
  Sender: FDA-Public Use
  Company Number: US-BIOGENIDEC-2013BI029545

PATIENT
  Age: 37 Year
  Sex: Male

DRUGS (2)
  1. TYSABRI [Suspect]
     Indication: MULTIPLE SCLEROSIS
     Route: 042
     Dates: start: 2009
  2. TYSABRI [Suspect]
     Indication: MULTIPLE SCLEROSIS
     Route: 042
     Dates: start: 20100414

REACTIONS (24)
  - Gait disturbance [Not Recovered/Not Resolved]
  - Memory impairment [Not Recovered/Not Resolved]
  - Ear infection [Recovered/Resolved]
  - Sciatica [Recovered/Resolved]
  - Weight decreased [Recovered/Resolved]
  - Musculoskeletal disorder [Unknown]
  - Dysarthria [Recovered/Resolved]
  - Aphasia [Recovered/Resolved]
  - Dissociation [Recovered/Resolved]
  - Tremor [Recovered/Resolved]
  - Balance disorder [Recovered/Resolved]
  - Paraesthesia [Recovered/Resolved]
  - Poor quality sleep [Not Recovered/Not Resolved]
  - Hyperhidrosis [Recovered/Resolved]
  - Respiratory disorder [Recovered/Resolved]
  - Rash macular [Recovered/Resolved]
  - Bronchitis [Recovered/Resolved]
  - Sinusitis [Recovered/Resolved]
  - Pharyngitis [Recovered/Resolved]
  - Candida infection [Recovered/Resolved]
  - Fatigue [Recovered/Resolved]
  - Sluggishness [Recovered/Resolved]
  - Pneumonia [Recovered/Resolved]
  - Hypersensitivity [Recovered/Resolved]
